FAERS Safety Report 8009211 (Version 33)
Quarter: 2014Q1

REPORT INFORMATION
  Report Type: Spontaneous
  Country: US (occurrence: US)
  Receive Date: 20110624
  Receipt Date: 20140307
  Transmission Date: 20141002
  Serious: Yes (Hospitalization, Disabling, Other)
  Sender: FDA-Public Use
  Company Number: PHEH2011US00492

PATIENT
  Sex: Male

DRUGS (19)
  1. ZOMETA [Suspect]
     Route: 042
     Dates: start: 200609, end: 200910
  2. NOVOLOG [Concomitant]
  3. GABAPENTIN [Concomitant]
  4. COUMADINE [Concomitant]
  5. METOPROLOL [Concomitant]
  6. FLOMOX [Concomitant]
  7. INSULIN [Concomitant]
  8. TORSEMIDE [Concomitant]
     Dosage: 20 MG,  DAILY
  9. ATENOLOL [Concomitant]
     Dosage: 25 MG, ONCE/SINGLE
  10. METFORMIN [Concomitant]
  11. GLIPIZIDE [Concomitant]
  12. TRICOR [Concomitant]
  13. NORVAS [Concomitant]
  14. VITA-E [Concomitant]
  15. SELENIUM [Concomitant]
  16. LYCOPENE [Concomitant]
  17. DEXAMETASON [Concomitant]
  18. TAXOTERE [Concomitant]
  19. ENALAPRIL [Concomitant]

REACTIONS (139)
  - Coronary artery disease [Unknown]
  - Renal failure chronic [Unknown]
  - Renal cyst [Unknown]
  - Eye discharge [Unknown]
  - Spondylolisthesis [Unknown]
  - Osteopenia [Unknown]
  - Thyroid neoplasm [Unknown]
  - Cerebral atrophy [Unknown]
  - Obstructive uropathy [Unknown]
  - Haemoptysis [Unknown]
  - Atrial fibrillation [Unknown]
  - Peripheral artery aneurysm [Unknown]
  - Spinal disorder [Unknown]
  - Neuropathy peripheral [Unknown]
  - Osteosclerosis [Unknown]
  - Sacroiliitis [Unknown]
  - Hyperlipidaemia [Unknown]
  - Diabetic neuropathy [Unknown]
  - Diabetic foot [Unknown]
  - Skin ulcer [Unknown]
  - Onychomycosis [Unknown]
  - Onychalgia [Unknown]
  - Corneal opacity [Unknown]
  - Local swelling [Unknown]
  - Exposed bone in jaw [Unknown]
  - Pain in jaw [Unknown]
  - Swelling [Unknown]
  - Bone loss [Unknown]
  - Sexual dysfunction [Unknown]
  - Keratitis [Unknown]
  - Corneal scar [Unknown]
  - Nodule [Unknown]
  - Intervertebral disc compression [Unknown]
  - Vertebral foraminal stenosis [Unknown]
  - Anaemia [Unknown]
  - Spinal deformity [Unknown]
  - Chronic obstructive pulmonary disease [Unknown]
  - Blindness unilateral [Unknown]
  - Infection [Unknown]
  - Haematuria [Unknown]
  - Metabolic acidosis [Unknown]
  - Vitamin D deficiency [Unknown]
  - Bladder mass [Unknown]
  - Granuloma annulare [Unknown]
  - Prostate cancer metastatic [Unknown]
  - Mitral valve incompetence [Unknown]
  - Dilatation atrial [Unknown]
  - Device malfunction [Unknown]
  - Hypotension [Unknown]
  - QRS axis abnormal [Unknown]
  - Pseudomonal bacteraemia [Unknown]
  - Intervertebral disc space narrowing [Unknown]
  - Sciatica [Unknown]
  - Atrial flutter [Unknown]
  - Coagulopathy [Unknown]
  - Ear infection [Unknown]
  - Dysuria [Unknown]
  - Poor dental condition [Unknown]
  - Pneumonia [Unknown]
  - Lordosis [Unknown]
  - Leukocytosis [Unknown]
  - Abdominal distension [Unknown]
  - Urosepsis [Unknown]
  - Lumbar spinal stenosis [Unknown]
  - Cystitis [Unknown]
  - Diverticulitis [Unknown]
  - Pancreatitis [Unknown]
  - Hydroureter [Unknown]
  - Pyelonephritis [Unknown]
  - Anorectal disorder [Unknown]
  - Pancreatic atrophy [Unknown]
  - Gallbladder enlargement [Unknown]
  - Angiopathy [Unknown]
  - Haematochezia [Unknown]
  - Urinary tract infection enterococcal [Unknown]
  - Urinary tract infection fungal [Unknown]
  - Renal failure acute [Unknown]
  - Azotaemia [Recovered/Resolved]
  - Nocturia [Unknown]
  - Chest pain [Unknown]
  - Hyperkalaemia [Unknown]
  - Insomnia [Unknown]
  - Dizziness [Unknown]
  - Pyrexia [Unknown]
  - Hypoaesthesia [Unknown]
  - Paraesthesia [Unknown]
  - Arthralgia [Unknown]
  - Muscular weakness [Unknown]
  - Joint swelling [Unknown]
  - Rash [Unknown]
  - Pruritus [Unknown]
  - Gait disturbance [Unknown]
  - Dyspnoea [Unknown]
  - Back pain [Recovered/Resolved]
  - Urinary incontinence [Unknown]
  - Hyperhidrosis [Unknown]
  - Fatigue [Unknown]
  - Overweight [Unknown]
  - Blister [Unknown]
  - Skin plaque [Unknown]
  - Hypokalaemia [Unknown]
  - Sinus tachycardia [Unknown]
  - Diarrhoea [Unknown]
  - Nausea [Unknown]
  - Vomiting [Unknown]
  - Sepsis [Recovered/Resolved]
  - Dehydration [Unknown]
  - Urinary tract infection [Unknown]
  - Osteonecrosis of jaw [Unknown]
  - Pain [Unknown]
  - Deformity [Unknown]
  - Discomfort [Unknown]
  - Anxiety [Unknown]
  - Injury [Unknown]
  - Dysphagia [Unknown]
  - Prostate cancer [Unknown]
  - Metastases to bone [Unknown]
  - Metastases to spine [Unknown]
  - Malignant neoplasm progression [Unknown]
  - Lymphadenopathy [Unknown]
  - Lipoma [Unknown]
  - Adrenal adenoma [Unknown]
  - Facet joint syndrome [Unknown]
  - Intervertebral disc protrusion [Unknown]
  - Cervical cord compression [Unknown]
  - Myelomalacia [Unknown]
  - Benign neoplasm of adrenal gland [Unknown]
  - Hepatic lesion [Unknown]
  - Hepatic cyst [Unknown]
  - Pulmonary mass [Unknown]
  - Osteomyelitis [Unknown]
  - Bladder outlet obstruction [Unknown]
  - Fall [Unknown]
  - Hydronephrosis [Unknown]
  - Urinary retention [Unknown]
  - Osteoarthritis [Unknown]
  - Radiculopathy [Unknown]
  - Arthritis [Unknown]
  - Intervertebral disc degeneration [Unknown]
